FAERS Safety Report 12525855 (Version 4)
Quarter: 2016Q4

REPORT INFORMATION
  Report Type: Spontaneous
  Country: JP (occurrence: JP)
  Receive Date: 20160705
  Receipt Date: 20161221
  Transmission Date: 20170207
  Serious: Yes (Hospitalization, Other)
  Sender: FDA-Public Use
  Company Number: JP-009507513-1606JPN005257

PATIENT
  Age: 99 Year
  Sex: Male
  Weight: 40 kg

DRUGS (47)
  1. SENNOSIDES. [Concomitant]
     Active Substance: SENNOSIDES
     Dosage: 36 MG, QD
     Route: 048
     Dates: start: 20160531
  2. MAGMITT [Concomitant]
     Active Substance: MAGNESIUM OXIDE
     Dosage: 660 MG, BID
     Route: 048
     Dates: end: 20160508
  3. FUROSEMIDE. [Concomitant]
     Active Substance: FUROSEMIDE
     Dosage: UNK
     Route: 065
  4. BAYASPIRIN [Concomitant]
     Active Substance: ASPIRIN
     Dosage: UNK
     Route: 048
  5. BICANATE [Concomitant]
     Dosage: UNK
     Route: 051
     Dates: start: 20160509, end: 20160510
  6. SODIUM CHLORIDE. [Concomitant]
     Active Substance: SODIUM CHLORIDE
     Dosage: UNK
     Route: 051
     Dates: start: 20160513, end: 20160516
  7. SEVOFRANE [Concomitant]
     Active Substance: SEVOFLURANE
     Dosage: UNK
     Route: 055
     Dates: start: 20160510, end: 20160510
  8. MAGMITT [Concomitant]
     Active Substance: MAGNESIUM OXIDE
     Dosage: 500 MG, TID
     Route: 048
     Dates: start: 20160518
  9. FAMOTIDINE D [Concomitant]
     Active Substance: FAMOTIDINE
     Dosage: UNK
     Route: 048
  10. ISOTONIC SODIUM CHLORIDE SOLUTION KIT H [Concomitant]
     Dosage: UNK
     Route: 051
     Dates: start: 20160510, end: 20160512
  11. ALBUMINATE [Concomitant]
     Dosage: UNK
     Route: 051
     Dates: start: 20160510, end: 20160512
  12. ALBUMIN HUMAN [Concomitant]
     Active Substance: ALBUMIN HUMAN
     Dosage: DAILY DOSAGE UNKNOWN
     Route: 051
     Dates: start: 20160512, end: 20160514
  13. TIENAM FOR INTRAVENOUS DRIP INFUSION 0.5G [Suspect]
     Active Substance: CILASTATIN SODIUM\IMIPENEM
     Indication: INFECTION
     Dosage: 0.5 G, BID
     Route: 041
     Dates: start: 20160509, end: 20160510
  14. TIENAM FOR INTRAVENOUS DRIP INFUSION 0.5G [Suspect]
     Active Substance: CILASTATIN SODIUM\IMIPENEM
     Indication: CHOLESTASIS
     Dosage: 0.5 G, QD
     Route: 041
     Dates: start: 20160511, end: 20160512
  15. URIEF [Suspect]
     Active Substance: SILODOSIN
     Indication: BENIGN PROSTATIC HYPERPLASIA
     Dosage: 4 MG, QD
     Route: 048
     Dates: end: 20160508
  16. SENNOSIDES. [Concomitant]
     Active Substance: SENNOSIDES
     Dosage: 24 MG, QD
     Route: 048
     Dates: start: 20160520, end: 20160530
  17. MUCOFILIN [Concomitant]
     Dosage: 1 DF, BID
     Route: 055
     Dates: start: 20160512, end: 20160530
  18. ACELIO [Concomitant]
     Active Substance: ACETAMINOPHEN
     Dosage: UNK
     Route: 051
     Dates: start: 20160510, end: 20160510
  19. ESLAX INTRAVENOUS 25MG/2.5ML [Concomitant]
     Active Substance: ROCURONIUM BROMIDE
     Dosage: UNK
     Route: 051
     Dates: start: 20160510, end: 20160510
  20. FRANDOL [Concomitant]
     Active Substance: ISOSORBIDE DINITRATE
     Dosage: 40 MG, QD
     Route: 062
     Dates: start: 20160510, end: 20160515
  21. LECICARBON [Concomitant]
     Active Substance: SODIUM BICARBONATE\SODIUM PHOSPHATE, MONOBASIC
     Dosage: 2 DF, QD
     Route: 054
     Dates: start: 20160513, end: 20160516
  22. LECICARBON [Concomitant]
     Active Substance: SODIUM BICARBONATE\SODIUM PHOSPHATE, MONOBASIC
     Dosage: 2 DF, QD
     Route: 054
     Dates: start: 20160519, end: 20160531
  23. BFLUID [Concomitant]
     Active Substance: AMINO ACIDS\DEXTROSE\ELECTROLYTES NOS\VITAMINS
     Dosage: UNK
     Route: 051
     Dates: start: 20160520, end: 20160526
  24. SODIUM CHLORIDE. [Concomitant]
     Active Substance: SODIUM CHLORIDE
     Dosage: DAILY DOSAGE UNKNOWN
     Route: 051
     Dates: start: 20160510, end: 20160512
  25. TIENAM FOR INTRAVENOUS DRIP INFUSION 0.5G [Suspect]
     Active Substance: CILASTATIN SODIUM\IMIPENEM
     Dosage: 0.5 G, QD. INDICATION CHOLESTASIS. OTHER INDICATION OF TREATMENT: CHOLANGITIS
     Route: 041
     Dates: start: 20160514, end: 20160516
  26. NORVASC [Concomitant]
     Active Substance: AMLODIPINE BESYLATE
     Dosage: UNK
     Route: 048
  27. ELNEOPA NO. 1 [Concomitant]
     Dosage: DAILY DOSAGE UNKNOWN
     Route: 051
     Dates: start: 20160513, end: 20160519
  28. EPHEDRINE HYDROCHLORIDE [Concomitant]
     Active Substance: EPHEDRINE HYDROCHLORIDE
     Dosage: DAILY DOSAGE UNKNOWN
     Route: 051
     Dates: start: 20160510, end: 20160510
  29. URIEF [Suspect]
     Active Substance: SILODOSIN
     Dosage: 4 MG, QD
     Route: 048
     Dates: start: 20160524, end: 20160609
  30. FERROMIA [Concomitant]
     Active Substance: FERROUS CITRATE
     Dosage: 100 MG, QD
     Route: 048
     Dates: start: 20160521
  31. MEPTIN [Concomitant]
     Active Substance: PROCATEROL HYDROCHLORIDE
     Dosage: 1 DF, BID
     Route: 055
     Dates: start: 20160512, end: 20160530
  32. FEBURIC [Concomitant]
     Active Substance: FEBUXOSTAT
     Dosage: UNK
     Route: 048
  33. NEOLAMIN 3B INTRAVENOUS [Concomitant]
     Dosage: DAILY DOSAGE UNKNOWN
     Route: 051
     Dates: start: 20160509, end: 20160511
  34. FENTANYL. [Concomitant]
     Active Substance: FENTANYL
     Dosage: UNK
     Route: 051
     Dates: start: 20160510, end: 20160512
  35. DIPRIVAN [Concomitant]
     Active Substance: PROPOFOL
     Dosage: UNK
     Route: 051
     Dates: start: 20160510, end: 20160510
  36. TIENAM FOR INTRAVENOUS DRIP INFUSION 0.5G [Suspect]
     Active Substance: CILASTATIN SODIUM\IMIPENEM
     Indication: CHOLANGITIS
     Dosage: 0.5 G, BID. INDICATION CHOLESTASIS, OTHER INDICATION OF TREATMENT: CHOLANGITIS
     Route: 041
     Dates: start: 20160513, end: 20160513
  37. AVOLVE [Concomitant]
     Active Substance: DUTASTERIDE
     Dosage: 0.5 MG, QD
     Route: 048
     Dates: start: 20160526
  38. ETIZOLAM [Concomitant]
     Active Substance: ETIZOLAM
     Dosage: UNK
     Route: 048
  39. BICANATE [Concomitant]
     Dosage: UNK
     Route: 051
     Dates: start: 20160524, end: 20160524
  40. VEEN F [Concomitant]
     Dosage: DAILY DOSAGE UNKNOWN
     Route: 051
     Dates: start: 20160511, end: 20160512
  41. FESIN [Concomitant]
     Active Substance: IRON SUCROSE
     Dosage: UNK
     Route: 051
     Dates: start: 20160519, end: 20160520
  42. BRIDION [Concomitant]
     Active Substance: SUGAMMADEX
     Dosage: UNK
     Route: 051
     Dates: start: 20160510, end: 20160510
  43. URSO [Suspect]
     Active Substance: URSODIOL
     Indication: CHOLESTASIS
     Dosage: 100 MG, TID
     Route: 048
     Dates: start: 20160516, end: 20160607
  44. UNASYN S [Concomitant]
     Active Substance: AMPICILLIN SODIUM\SULBACTAM SODIUM
     Indication: URINARY TRACT INFECTION
     Dosage: 3 G, BID
     Route: 051
     Dates: start: 20160523, end: 20160526
  45. SOLITA T-3 [Concomitant]
     Dosage: UNK
     Route: 051
     Dates: start: 20160509, end: 20160511
  46. BFLUID [Concomitant]
     Active Substance: AMINO ACIDS\DEXTROSE\ELECTROLYTES NOS\VITAMINS
     Dosage: UNK
     Route: 051
     Dates: start: 20160510, end: 20160512
  47. LASIX [Concomitant]
     Active Substance: FUROSEMIDE
     Dosage: DAILY DOSAGE UNKNOWN
     Route: 051
     Dates: start: 20160511, end: 20160512

REACTIONS (6)
  - Haemoglobin decreased [Recovered/Resolved]
  - Urinary retention [Unknown]
  - Cholangitis [Recovered/Resolved]
  - Urinary tract infection [Recovered/Resolved]
  - Cholestasis [Recovered/Resolved]
  - White blood cell count decreased [Recovered/Resolved]

NARRATIVE: CASE EVENT DATE: 20160513
